FAERS Safety Report 21434971 (Version 5)
Quarter: 2023Q4

REPORT INFORMATION
  Report Type: Report from Study
  Country: US (occurrence: US)
  Receive Date: 20221010
  Receipt Date: 20231107
  Transmission Date: 20240110
  Serious: Yes (Hospitalization, Other)
  Sender: FDA-Public Use
  Company Number: US-ABBVIE-4147156

PATIENT
  Age: 52 Year
  Sex: Female

DRUGS (5)
  1. HUMIRA [Suspect]
     Active Substance: ADALIMUMAB
     Indication: Rheumatoid arthritis
     Dosage: CITRATE FREE?FORM STRENGTH: 40 MILLIGRAM
     Route: 058
  2. HUMIRA [Suspect]
     Active Substance: ADALIMUMAB
     Dosage: CITRATE FREE?FORM STRENGTH: 40 MILLIGRAM
     Route: 058
  3. MODERNA COVID-19 VACCINE [Concomitant]
     Active Substance: ELASOMERAN
     Indication: COVID-19 immunisation
     Dosage: BOOSTER DOSE; FREQUENCY: 1 IN ONCE
     Route: 030
  4. PFIZER-BIONTECH COVID-19 VACCINE [Concomitant]
     Active Substance: TOZINAMERAN
     Indication: COVID-19 immunisation
     Dosage: FREQUENCY: 1 IN ONCE
     Route: 030
  5. ACETAMINOPHEN [Suspect]
     Active Substance: ACETAMINOPHEN
     Indication: Product used for unknown indication
     Route: 065

REACTIONS (32)
  - Post-acute COVID-19 syndrome [Unknown]
  - Fall [Unknown]
  - Pain in extremity [Unknown]
  - COVID-19 pneumonia [Unknown]
  - General physical health deterioration [Unknown]
  - Dizziness [Unknown]
  - Pain [Unknown]
  - Asthma [Unknown]
  - Contusion [Unknown]
  - Illness [Unknown]
  - Cognitive disorder [Not Recovered/Not Resolved]
  - Sinusitis [Not Recovered/Not Resolved]
  - Memory impairment [Not Recovered/Not Resolved]
  - Neck pain [Unknown]
  - Abdominal pain upper [Unknown]
  - Weight decreased [Unknown]
  - Arthralgia [Unknown]
  - Mammogram abnormal [Unknown]
  - Biopsy [Unknown]
  - Hysterectomy [Unknown]
  - Scar [Unknown]
  - Joint lock [Unknown]
  - Bursitis [Unknown]
  - Musculoskeletal stiffness [Unknown]
  - Concussion [Unknown]
  - Suture related complication [Unknown]
  - Skin disorder [Unknown]
  - Mastitis [Unknown]
  - Dermatitis contact [Unknown]
  - Scratch [Unknown]
  - Breast mass [Unknown]
  - Pain [Unknown]

NARRATIVE: CASE EVENT DATE: 20230430
